FAERS Safety Report 9700308 (Version 2)
Quarter: 2013Q4

REPORT INFORMATION
  Report Type: Report from Study
  Country: CA (occurrence: CA)
  Receive Date: 20131121
  Receipt Date: 20131202
  Transmission Date: 20140711
  Serious: Yes (Other)
  Sender: FDA-Public Use
  Company Number: CA-AMGEN-CANNI2013080877

PATIENT
  Age: 60 Year
  Sex: Male

DRUGS (16)
  1. XGEVA [Suspect]
     Indication: METASTASES TO BONE
     Dosage: 120 MG, Q4WK
     Route: 058
     Dates: start: 20120328, end: 20130514
  2. DENOSUMAB [Suspect]
     Indication: PRODUCT USED FOR UNKNOWN INDICATION
     Route: 065
  3. SENOKOT                            /00142201/ [Concomitant]
     Dosage: 8.6 MG, AS NECESSARY
  4. LUPRON DEPOT-PED [Concomitant]
     Dosage: 30 MG, UNK
  5. CLINDAMYCIN [Concomitant]
     Dosage: 300 MG, TID FOR 7 DAYS
  6. STATEX                             /00036302/ [Concomitant]
     Dosage: 5 MG, BID WHEN NEEDED
  7. RATIO-LENOLTEC NO 3 [Concomitant]
     Dosage: 30 MG, QID WHEN BEEDED
  8. BICALUTAMIDE [Concomitant]
     Dosage: 50 MG, QD
  9. DOXYCYCLINE [Concomitant]
     Dosage: 100 MG, BID
  10. JANUVIA [Concomitant]
     Dosage: 100 MG, QD
  11. RAMIPRIL [Concomitant]
     Dosage: 10 MG, QD
  12. METFORMIN [Concomitant]
     Dosage: 500 MG, BID
  13. PENICILLIN                         /00000901/ [Concomitant]
     Dosage: 300 MG, UNK
  14. CLOTRIMADERM [Concomitant]
     Dosage: 1 %, QID
  15. HYDERM                             /00028601/ [Concomitant]
     Dosage: 1 %, BID
  16. NAPROXEN [Concomitant]
     Dosage: 500 MG, BID

REACTIONS (1)
  - Osteonecrosis of jaw [Recovering/Resolving]
